FAERS Safety Report 23613920 (Version 1)
Quarter: 2024Q1

REPORT INFORMATION
  Report Type: Spontaneous
  Country: JP (occurrence: JP)
  Receive Date: 20240310
  Receipt Date: 20240310
  Transmission Date: 20240410
  Serious: Yes (Hospitalization, Other)
  Sender: FDA-Public Use
  Company Number: JP-EPICPHARMA-JP-2024EPCLIT00273

PATIENT
  Age: 64 Year
  Sex: Female

DRUGS (5)
  1. CARBOPLATIN [Suspect]
     Active Substance: CARBOPLATIN
     Indication: Thymoma malignant
     Route: 065
  2. ETOPOSIDE [Suspect]
     Active Substance: ETOPOSIDE
     Indication: Thymoma malignant
     Route: 065
  3. PACLITAXEL [Suspect]
     Active Substance: PACLITAXEL
     Indication: Thymoma malignant
     Route: 065
  4. AMRUBICIN [Suspect]
     Active Substance: AMRUBICIN
     Indication: Thymoma malignant
     Route: 065
  5. DAUNORUBICIN [Suspect]
     Active Substance: DAUNORUBICIN
     Indication: Thymoma malignant
     Route: 065

REACTIONS (2)
  - Acute myeloid leukaemia [Not Recovered/Not Resolved]
  - Drug ineffective for unapproved indication [Unknown]
